FAERS Safety Report 8289297-8 (Version None)
Quarter: 2012Q2

REPORT INFORMATION
  Report Type: 
  Country: None (occurrence: None)
  Receive Date: 20120417
  Receipt Date: 20120412
  Transmission Date: 20120825
  Serious: Yes (Death, Hospitalization, Other)
  Sender: FDA-Public Use
  Company Number: PHHY2011JP107349

PATIENT
  Sex: Female
  Weight: 47 kg

DRUGS (5)
  1. SUPRECUR [Concomitant]
  2. GRAN [Concomitant]
     Route: 042
  3. EXJADE [Suspect]
     Indication: IRON OVERLOAD
     Dosage: 1000 MG, DAILY
     Route: 048
     Dates: start: 20081201, end: 20081225
  4. RED BLOOD CELLS, CONCENTRATED [Concomitant]
     Dosage: 2 U, EVERY WEEK
     Dates: start: 20081201, end: 20101215
  5. ITRACONAZOLE [Concomitant]
     Indication: PROPHYLAXIS
     Dosage: 20 MG, UNK
     Dates: start: 20081220, end: 20090108

REACTIONS (8)
  - PANCYTOPENIA [None]
  - CONJUNCTIVAL HAEMORRHAGE [None]
  - NEOPLASM PROGRESSION [None]
  - HYPERSENSITIVITY [None]
  - PURPURA [None]
  - NEOPLASM MALIGNANT [None]
  - HEPATIC FUNCTION ABNORMAL [None]
  - PYREXIA [None]
